FAERS Safety Report 5828510-0 (Version None)
Quarter: 2008Q3

REPORT INFORMATION
  Report Type: 
  Country: None (occurrence: None)
  Receive Date: 20080729
  Receipt Date: 20080729
  Transmission Date: 20090109
  Serious: Yes (Hospitalization, Other)
  Sender: FDA-Public Use
  Company Number: None

PATIENT
  Age: 19 Year
  Sex: Male
  Weight: 99.7913 kg

DRUGS (1)
  1. CEFDINIR [Suspect]
     Indication: ACUTE MYOCARDIAL INFARCTION
     Dosage: 300MG - 1 CAPSULE BID PO
     Route: 048
     Dates: start: 20080708, end: 20080709

REACTIONS (2)
  - CARDIAC DISORDER [None]
  - MYOCARDIAL INFARCTION [None]
